FAERS Safety Report 7444594-0 (Version None)
Quarter: 2011Q2

REPORT INFORMATION
  Report Type: 
  Country: None (occurrence: None)
  Receive Date: 20110419
  Receipt Date: 20110405
  Transmission Date: 20111010
  Serious: Yes (Other)
  Sender: FDA-Public Use
  Company Number: DSM-2011-00403

PATIENT
  Age: 54 Year
  Sex: Male

DRUGS (7)
  1. OLMESARTAN MEDOXOMIL [Suspect]
     Indication: HYPERTENSION
     Dosage: ORAL
     Route: 048
     Dates: end: 20100707
  2. AMLODIPINE [Suspect]
     Indication: HYPERTENSION
     Dates: end: 20100707
  3. ALLOPURINOL [Concomitant]
  4. CRESTOR [Concomitant]
  5. BISOPROLOL FUMARATE [Suspect]
     Indication: HYPERTENSION
     Dosage: ORAL
     Route: 048
     Dates: start: 20100704, end: 20100716
  6. HYDROCHLOROTHIAZIDE [Suspect]
     Indication: HYPERTENSION
     Dates: end: 20100707
  7. ACTONEL (RISEDRONIC ACID) (RISEDRONIC ACID) [Concomitant]

REACTIONS (1)
  - ECZEMA [None]
